FAERS Safety Report 4816898-9 (Version None)
Quarter: 2005Q4

REPORT INFORMATION
  Report Type: 
  Country: None (occurrence: None)
  Receive Date: 20051031
  Receipt Date: 20051031
  Transmission Date: 20060501
  Serious: Yes (Hospitalization)
  Sender: FDA-Public Use
  Company Number: None

PATIENT
  Age: 80 Year
  Sex: Male

DRUGS (12)
  1. DILTIAZEM HCL [Suspect]
     Indication: HYPERTENSION
     Dosage: 240 MG QD
     Dates: start: 20000101
  2. WARFARIN [Concomitant]
  3. DSS [Concomitant]
  4. FUROSEMIDE [Concomitant]
  5. ISOSORBIDE [Concomitant]
  6. METFORMIN HCL [Concomitant]
  7. NITROGLYCERIN [Concomitant]
  8. RANITIDINE [Concomitant]
  9. VALSARTAN [Concomitant]
  10. ZOCOR [Concomitant]
  11. ROZGLITAZONE [Concomitant]
  12. METOPROLOL [Concomitant]

REACTIONS (1)
  - ATRIAL FIBRILLATION [None]
